FAERS Safety Report 17016608 (Version 1)
Quarter: 2019Q4

REPORT INFORMATION
  Report Type: Spontaneous
  Country: US (occurrence: US)
  Receive Date: 20191110
  Receipt Date: 20191110
  Transmission Date: 20200122
  Serious: Yes (Life-Threatening)
  Sender: FDA-Public Use
  Company Number: None

PATIENT
  Age: 74 Year
  Sex: Female
  Weight: 83.25 kg

DRUGS (7)
  1. TRAMADOL. [Concomitant]
     Active Substance: TRAMADOL
  2. OXYCODONE [Concomitant]
     Active Substance: OXYCODONE
  3. CITALOPRAM [Concomitant]
     Active Substance: CITALOPRAM HYDROBROMIDE
  4. ATENOLOL. [Concomitant]
     Active Substance: ATENOLOL
  5. LIPITOR [Concomitant]
     Active Substance: ATORVASTATIN CALCIUM
  6. MULTIVITAMIN [Concomitant]
     Active Substance: VITAMINS
  7. CAPECITABINE. [Suspect]
     Active Substance: CAPECITABINE
     Indication: BREAST CANCER
     Route: 048
     Dates: start: 20190503, end: 20191101

REACTIONS (2)
  - Disease progression [None]
  - Metastasis [None]

NARRATIVE: CASE EVENT DATE: 20191110
